FAERS Safety Report 6661986-8 (Version None)
Quarter: 2010Q1

REPORT INFORMATION
  Report Type: 
  Country: None (occurrence: None)
  Receive Date: 20100331
  Receipt Date: 20091125
  Transmission Date: 20100710
  Serious: No
  Sender: FDA-Public Use
  Company Number: US-BRISTOL-MYERS SQUIBB COMPANY-14863005

PATIENT
  Age: 46 Year
  Sex: Female

DRUGS (2)
  1. ERBITUX [Suspect]
     Indication: HEAD AND NECK CANCER
     Dosage: STRENGTH-250MG/M2
     Route: 042
  2. COUMADIN [Suspect]

REACTIONS (1)
  - CONTUSION [None]
